FAERS Safety Report 19718479 (Version 1)
Quarter: 2021Q3

REPORT INFORMATION
  Report Type: Spontaneous
  Country: US (occurrence: US)
  Receive Date: 20210818
  Receipt Date: 20210818
  Transmission Date: 20211014
  Serious: No
  Sender: FDA-Public Use
  Company Number: None

PATIENT
  Age: 63 Year
  Sex: Female

DRUGS (1)
  1. VUMERITY [Suspect]
     Active Substance: DIROXIMEL FUMARATE
     Indication: MULTIPLE SCLEROSIS
     Route: 048
     Dates: start: 20210311

REACTIONS (5)
  - Paraesthesia [None]
  - Lymphocyte count decreased [None]
  - Musculoskeletal stiffness [None]
  - Pain in extremity [None]
  - Chromaturia [None]

NARRATIVE: CASE EVENT DATE: 20210601
